FAERS Safety Report 9669384 (Version 4)
Quarter: 2014Q1

REPORT INFORMATION
  Report Type: Spontaneous
  Country: US (occurrence: US)
  Receive Date: 20131105
  Receipt Date: 20140128
  Transmission Date: 20141002
  Serious: Yes (Other)
  Sender: FDA-Public Use
  Company Number: US-009507513-1310USA011786

PATIENT
  Sex: Male

DRUGS (7)
  1. PEGINTRON [Suspect]
     Indication: HEPATITIS C
     Dosage: 0.5 ML, ONCE A WEEK
     Route: 058
     Dates: start: 20131025
  2. PEGINTRON [Suspect]
     Dosage: UNK
     Dates: start: 20050107, end: 20051230
  3. REBETOL [Suspect]
     Indication: HEPATITIS C
     Dosage: 3 PILLS IN THE AM AND 2 PILLS IN THE PM
     Route: 048
     Dates: start: 20131025
  4. REBETOL [Suspect]
     Dosage: 2 AM, 2 PM
     Route: 048
     Dates: start: 2013
  5. REBETOL [Suspect]
     Dosage: UNK
     Route: 048
     Dates: start: 20050107, end: 20051230
  6. METFORMIN [Concomitant]
     Indication: BLOOD GLUCOSE ABNORMAL
     Dosage: 500 MG FOUR TIMES A DAY
  7. BENICAR [Concomitant]
     Indication: HYPERTENSION
     Dosage: 40 MG DAILY

REACTIONS (8)
  - Aspartate aminotransferase increased [Unknown]
  - Alanine aminotransferase increased [Unknown]
  - Red blood cell count decreased [Unknown]
  - Adverse event [Unknown]
  - Rash [Unknown]
  - Haemoglobin decreased [Unknown]
  - Anaemia [Unknown]
  - White blood cell count decreased [Unknown]
